FAERS Safety Report 9647775 (Version 1)
Quarter: 2013Q4

REPORT INFORMATION
  Report Type: Spontaneous
  Country: US (occurrence: US)
  Receive Date: 20131028
  Receipt Date: 20131028
  Transmission Date: 20140711
  Serious: No
  Sender: FDA-Public Use
  Company Number: US-PFIZER INC-2013303885

PATIENT
  Age: 30 Year
  Sex: Male

DRUGS (1)
  1. PRISTIQ [Suspect]
     Dosage: UNK

REACTIONS (6)
  - Pain [Unknown]
  - Headache [Unknown]
  - Psychiatric symptom [Unknown]
  - Restlessness [Unknown]
  - Phobia [Unknown]
  - Palpitations [Unknown]
